FAERS Safety Report 9409449 (Version 1)
Quarter: 2013Q3

REPORT INFORMATION
  Report Type: Spontaneous
  Country: US (occurrence: US)
  Receive Date: 20130719
  Receipt Date: 20130719
  Transmission Date: 20140515
  Serious: No
  Sender: FDA-Public Use
  Company Number: US-BAYER-2013-087314

PATIENT
  Age: 75 Year
  Sex: Female
  Weight: 72.56 kg

DRUGS (7)
  1. ALEVE CAPLET [Suspect]
     Indication: ANALGESIC THERAPY
     Dosage: 1 DF, BID
     Route: 048
     Dates: start: 20130707
  2. BAYER ASPIRIN REGIMEN ADULT LOW STRENGTH [Concomitant]
  3. LIPITOR [Concomitant]
  4. METAMUCIL [Concomitant]
  5. VITAMIN D [Concomitant]
  6. LETROZOLE [Concomitant]
  7. PRILOSEC [Concomitant]

REACTIONS (2)
  - Rash [Not Recovered/Not Resolved]
  - Pruritus [Not Recovered/Not Resolved]
